FAERS Safety Report 7412876-4 (Version None)
Quarter: 2011Q2

REPORT INFORMATION
  Report Type: 
  Country: None (occurrence: None)
  Receive Date: 20110413
  Receipt Date: 20110407
  Transmission Date: 20111010
  Serious: Yes (Other)
  Sender: FDA-Public Use
  Company Number: D0070949A

PATIENT
  Sex: Male

DRUGS (3)
  1. REQUIP [Suspect]
     Indication: PARKINSON'S DISEASE
     Dosage: 16MG PER DAY
     Route: 065
  2. MULTIPLE MEDICATION [Concomitant]
     Route: 065
  3. L-DOPA [Concomitant]
     Route: 065
     Dates: start: 20090101

REACTIONS (2)
  - HALLUCINATION [None]
  - DEMENTIA [None]
